FAERS Safety Report 7948211-2 (Version None)
Quarter: 2011Q4

REPORT INFORMATION
  Report Type: 
  Country: None (occurrence: None)
  Receive Date: 20111130
  Receipt Date: 20111123
  Transmission Date: 20120403
  Serious: Yes (Hospitalization, Other)
  Sender: FDA-Public Use
  Company Number: US-AMGEN-USASP2011062555

PATIENT
  Sex: Female
  Weight: 72.6 kg

DRUGS (3)
  1. NPLATE [Suspect]
     Indication: IDIOPATHIC THROMBOCYTOPENIC PURPURA
     Dates: start: 20111107
  2. ATENOLOL [Concomitant]
     Dosage: 25 MG, UNK
  3. PREDNISONE TAB [Concomitant]
     Dosage: 5 MG, UNK

REACTIONS (5)
  - HAEMORRHAGE [None]
  - OPEN WOUND [None]
  - DRUG INEFFECTIVE [None]
  - HYPOVOLAEMIA [None]
  - WEIGHT DECREASED [None]
